FAERS Safety Report 20423586 (Version 1)
Quarter: 2022Q1

REPORT INFORMATION
  Report Type: Spontaneous
  Country: US (occurrence: US)
  Receive Date: 20220203
  Receipt Date: 20220203
  Transmission Date: 20220423
  Serious: Yes (Hospitalization, Other)
  Sender: FDA-Public Use
  Company Number: US-TEVA-2022-US-2003905

PATIENT
  Sex: Female

DRUGS (1)
  1. EPINEPHRINE [Suspect]
     Active Substance: EPINEPHRINE
     Dosage: STRENGTH: 0.3 MG / 0.3 ML,
     Route: 065

REACTIONS (4)
  - Injury [Unknown]
  - Device alarm issue [Unknown]
  - Device deployment issue [Unknown]
  - Device difficult to use [Unknown]
